FAERS Safety Report 13325452 (Version 1)
Quarter: 2017Q1

REPORT INFORMATION
  Report Type: Spontaneous
  Country: US (occurrence: US)
  Receive Date: 20170310
  Receipt Date: 20170310
  Transmission Date: 20170428
  Serious: No
  Sender: FDA-Public Use
  Company Number: US-PERRIGO-16US021975

PATIENT
  Age: 38 Year
  Sex: Male
  Weight: 83.9 kg

DRUGS (4)
  1. TESTOSTERONE CYPIONATE. [Suspect]
     Active Substance: TESTOSTERONE CYPIONATE
     Dosage: 180 MG, SINGLE
     Route: 030
     Dates: start: 20161105, end: 20161105
  2. TESTOSTERONE CYPIONATE. [Suspect]
     Active Substance: TESTOSTERONE CYPIONATE
     Dosage: 200 MG, SINGLE
     Route: 030
     Dates: start: 20161110, end: 20161110
  3. TESTOSTERONE CYPIONATE. [Suspect]
     Active Substance: TESTOSTERONE CYPIONATE
     Indication: BLOOD TESTOSTERONE DECREASED
     Dosage: 200 MG, EVERY 5 DAYS
     Route: 030
     Dates: start: 201601, end: 20161104
  4. TESTOSTERONE CYPIONATE. [Suspect]
     Active Substance: TESTOSTERONE CYPIONATE
     Dosage: 180 MG, SINGLE
     Route: 030
     Dates: start: 20161115, end: 20161115

REACTIONS (1)
  - Prescribed overdose [Recovered/Resolved]

NARRATIVE: CASE EVENT DATE: 201601
